FAERS Safety Report 9350993 (Version 2)
Quarter: 2013Q3

REPORT INFORMATION
  Report Type: Spontaneous
  Country: RO (occurrence: RO)
  Receive Date: 20130617
  Receipt Date: 20130705
  Transmission Date: 20140515
  Serious: Yes (Death)
  Sender: FDA-Public Use
  Company Number: RO-JNJFOC-20130601459

PATIENT
  Sex: 0

DRUGS (5)
  1. FENTANYL TRANSDERMAL SYSTEM [Suspect]
     Indication: ANALGESIC THERAPY
     Route: 062
  2. TRAMADOL [Suspect]
     Indication: ANALGESIC THERAPY
     Route: 065
  3. PARACETAMOL [Suspect]
     Indication: ANALGESIC THERAPY
     Route: 065
  4. MORPHINE [Suspect]
     Indication: ANALGESIC THERAPY
     Route: 065
  5. PREGABALIN [Suspect]
     Indication: ANALGESIC THERAPY
     Route: 065

REACTIONS (1)
  - Death [Fatal]
